FAERS Safety Report 19588339 (Version 1)
Quarter: 2021Q3

REPORT INFORMATION
  Report Type: Spontaneous
  Country: US (occurrence: US)
  Receive Date: 20210721
  Receipt Date: 20210721
  Transmission Date: 20211014
  Serious: Yes (Hospitalization)
  Sender: FDA-Public Use
  Company Number: None

PATIENT
  Age: 65 Year
  Sex: Female
  Weight: 75.3 kg

DRUGS (2)
  1. CYTARABINE. [Suspect]
     Active Substance: CYTARABINE
     Dates: end: 20210208
  2. DAUNORUBICIN [Suspect]
     Active Substance: DAUNORUBICIN
     Dates: end: 20210204

REACTIONS (9)
  - Infection [None]
  - Haemoglobin decreased [None]
  - Oedema peripheral [None]
  - Blood pressure decreased [None]
  - Hypoxia [None]
  - Lung infiltration [None]
  - Diarrhoea [None]
  - Decreased appetite [None]
  - Sleep apnoea syndrome [None]

NARRATIVE: CASE EVENT DATE: 20210220
